FAERS Safety Report 21642022 (Version 1)
Quarter: 2022Q4

REPORT INFORMATION
  Report Type: Spontaneous
  Country: US (occurrence: US)
  Receive Date: 20221125
  Receipt Date: 20221125
  Transmission Date: 20230113
  Serious: Yes (Other)
  Sender: FDA-Public Use
  Company Number: US-ALKEM LABORATORIES LIMITED-US-ALKEM-2022-07600

PATIENT
  Age: 29 Year
  Sex: Male

DRUGS (13)
  1. OLANZAPINE [Suspect]
     Active Substance: OLANZAPINE
     Indication: Schizophrenia
     Dosage: 10 MILLIGRAM DAILY 1 DOSE
     Route: 065
  2. OLANZAPINE [Suspect]
     Active Substance: OLANZAPINE
     Dosage: 15 MILLIGRAM DAILY 10 DOSES
     Route: 065
  3. OLANZAPINE [Suspect]
     Active Substance: OLANZAPINE
     Dosage: 20 MILLIGRAM DAILY 7 DOSES
     Route: 065
  4. OLANZAPINE [Suspect]
     Active Substance: OLANZAPINE
     Dosage: 20 MILLIGRAM, BID (TWICE DAILY 24 DOSES)
     Route: 065
  5. OLANZAPINE [Suspect]
     Active Substance: OLANZAPINE
     Dosage: 15 MILLIGRAM DAILY 7 DOSES
     Route: 065
  6. OLANZAPINE [Suspect]
     Active Substance: OLANZAPINE
     Dosage: 5 MILLIGRAM DAILY 2 DOSES
     Route: 065
  7. CLOZAPINE [Suspect]
     Active Substance: CLOZAPINE
     Indication: Schizophrenia
     Dosage: 12.5 MILLIGRAM, BID (TWICE DAILY 8 DOSES)
     Route: 065
  8. CLOZAPINE [Suspect]
     Active Substance: CLOZAPINE
     Dosage: 25 MILLIGRAM, BID (TWICE DAILY 10 DOSES)
     Route: 065
  9. CLOZAPINE [Suspect]
     Active Substance: CLOZAPINE
     Dosage: 50 MILLIGRAM, BID (TWICE DAILY 8 DOSES)
     Route: 065
  10. CLOZAPINE [Suspect]
     Active Substance: CLOZAPINE
     Dosage: 75 MILLIGRAM, BID (TWICE DAILY 10 DOSES)
     Route: 065
  11. CLOZAPINE [Suspect]
     Active Substance: CLOZAPINE
     Dosage: 100 MILLIGRAM, BID (TWICE DAILY 4 DOSES)
     Route: 065
  12. LITHIUM [Concomitant]
     Active Substance: LITHIUM
     Indication: Schizophrenia
     Dosage: 450 MILLIGRAM, BID (TWICE DAILY)
     Route: 065
  13. HALOPERIDOL [Concomitant]
     Active Substance: HALOPERIDOL
     Indication: Schizophrenia
     Dosage: 10 MILLIGRAM INJECTION PRN
     Route: 065

REACTIONS (3)
  - Myocarditis [Recovering/Resolving]
  - Ejection fraction decreased [Recovering/Resolving]
  - Drug ineffective [Unknown]
